FAERS Safety Report 5239961-X (Version None)
Quarter: 2007Q1

REPORT INFORMATION
  Report Type: 
  Country: None (occurrence: None)
  Receive Date: 20070216
  Receipt Date: 20070207
  Transmission Date: 20070707
  Serious: Yes (Hospitalization, Disabling, Other)
  Sender: FDA-Public Use
  Company Number: US-PFIZER INC-2006126771

PATIENT
  Sex: Female
  Weight: 104.3 kg

DRUGS (3)
  1. CELEBREX [Suspect]
     Indication: ARTHRITIS
     Route: 048
  2. CELEBREX [Suspect]
     Indication: FIBROMYALGIA
  3. CELEBREX [Suspect]
     Indication: PAIN

REACTIONS (6)
  - AMNESIA [None]
  - BURNING SENSATION [None]
  - CEREBROVASCULAR ACCIDENT [None]
  - DEPRESSION [None]
  - PERIPHERAL COLDNESS [None]
  - WEIGHT INCREASED [None]
